FAERS Safety Report 16662153 (Version 1)
Quarter: 2019Q3

REPORT INFORMATION
  Report Type: Spontaneous
  Country: US (occurrence: US)
  Receive Date: 20190802
  Receipt Date: 20190802
  Transmission Date: 20191004
  Serious: Yes (Other)
  Sender: FDA-Public Use
  Company Number: None

PATIENT
  Age: 61 Year
  Sex: Female

DRUGS (6)
  1. CAPECITABINE. [Suspect]
     Active Substance: CAPECITABINE
     Indication: NEOPLASM MALIGNANT
     Route: 048
     Dates: start: 20170502
  2. AROMASIN [Concomitant]
     Active Substance: EXEMESTANE
     Dates: start: 20160316
  3. IMODIUM [Concomitant]
     Active Substance: LOPERAMIDE HYDROCHLORIDE
     Dates: start: 20180510
  4. AFINITOR [Concomitant]
     Active Substance: EVEROLIMUS
     Dates: start: 20160716
  5. ERGOCALCIFEROL. [Concomitant]
     Active Substance: ERGOCALCIFEROL
     Dates: start: 20160316
  6. XELODA [Concomitant]
     Active Substance: CAPECITABINE
     Dates: start: 20160316

REACTIONS (1)
  - Hepatitis A [None]

NARRATIVE: CASE EVENT DATE: 20190712
